FAERS Safety Report 9553592 (Version 1)
Quarter: 2013Q3

REPORT INFORMATION
  Report Type: Spontaneous
  Country: CN (occurrence: CN)
  Receive Date: 20130925
  Receipt Date: 20130925
  Transmission Date: 20140515
  Serious: Yes (Hospitalization, Other)
  Sender: FDA-Public Use
  Company Number: CN-PFIZER INC-2013274468

PATIENT
  Age: 50 Year
  Sex: Male
  Weight: 60 kg

DRUGS (6)
  1. LYRICA [Suspect]
     Indication: POST HERPETIC NEURALGIA
     Dosage: 150 MG, 2X/DAY
     Route: 048
     Dates: start: 20120305, end: 20120315
  2. CARBAMAZEPINE [Concomitant]
     Dosage: 0.2 G, 2X/DAY
     Dates: start: 20120303
  3. CARBAMAZEPINE [Concomitant]
     Dosage: 0.2 G, 3X/DAY
     Dates: start: 20120314
  4. MELOXICAM [Concomitant]
     Dosage: 15 MG, 1X/DAY
     Dates: start: 20120308
  5. SERTRALINE HYDROCHLORIDE [Concomitant]
     Dosage: 50 MG, 1X/DAY
     Dates: start: 20120309, end: 20120315
  6. DULOXETINE HYDROCHLORIDE [Concomitant]
     Dosage: 30 MG, 2X/DAY
     Dates: start: 20120315

REACTIONS (5)
  - Platelet count decreased [Recovering/Resolving]
  - Petechiae [Recovering/Resolving]
  - White blood cell count decreased [Recovering/Resolving]
  - Neutrophil count decreased [Recovering/Resolving]
  - Red blood cell count decreased [Recovering/Resolving]
